FAERS Safety Report 5500309-4 (Version None)
Quarter: 2007Q4

REPORT INFORMATION
  Report Type: 
  Country: None (occurrence: None)
  Receive Date: 20071025
  Receipt Date: 20071011
  Transmission Date: 20080405
  Serious: Yes (Other)
  Sender: FDA-Public Use
  Company Number: S07-USA-05468-01

PATIENT

DRUGS (2)
  1. LEXAPRO [Suspect]
     Dosage: 10 MG QD PO
     Route: 048
  2. LEXAPRO [Suspect]
     Dosage: 10 MG QD PO
     Route: 048

REACTIONS (1)
  - TRANSAMINASES INCREASED [None]
